FAERS Safety Report 7630266-6 (Version None)
Quarter: 2011Q3

REPORT INFORMATION
  Report Type: 
  Country: None (occurrence: None)
  Receive Date: 20110722
  Receipt Date: 20110627
  Transmission Date: 20111222
  Serious: No
  Sender: FDA-Public Use
  Company Number: US-B.I. PHARMACEUTICALS,INC./RIDGEFIELD-2010-BP-13826BP

PATIENT
  Sex: Male

DRUGS (9)
  1. SPIRONOLACTONE [Concomitant]
     Indication: HYPERTENSION
     Dosage: 12 MG
     Route: 048
     Dates: start: 20090101
  2. LIPITOR [Concomitant]
     Indication: BLOOD CHOLESTEROL INCREASED
     Dosage: 40 MG
     Route: 048
  3. PRADAXA [Suspect]
     Indication: ATRIAL FIBRILLATION
     Dosage: 300 MG
     Route: 048
     Dates: start: 20101128
  4. DILTIAZEM [Concomitant]
     Indication: CARDIAC DISORDER
  5. PRADAXA [Suspect]
     Indication: HEART RATE IRREGULAR
  6. DILTIAZEM [Concomitant]
     Indication: HYPERTENSION
     Dosage: 180 MG
     Route: 048
     Dates: start: 20080101
  7. BIOTIN [Suspect]
     Indication: SUPPLEMENTATION THERAPY
     Route: 048
     Dates: start: 20110524, end: 20110525
  8. NIASPAN [Concomitant]
     Indication: BLOOD CHOLESTEROL INCREASED
     Dosage: 500 MG
     Route: 048
     Dates: start: 20011001
  9. BISOPROLOL FUMARATE [Concomitant]
     Indication: HYPERTENSION
     Dosage: 10 MG
     Route: 048
     Dates: start: 20080101

REACTIONS (9)
  - ABDOMINAL DISTENSION [None]
  - SCRATCH [None]
  - LACERATION [None]
  - DYSPEPSIA [None]
  - HYPOAESTHESIA [None]
  - SCAB [None]
  - ABDOMINAL PAIN UPPER [None]
  - GASTROOESOPHAGEAL REFLUX DISEASE [None]
  - HEAD INJURY [None]
